FAERS Safety Report 9290959 (Version 4)
Quarter: 2013Q2

REPORT INFORMATION
  Report Type: Spontaneous
  Country: CN (occurrence: None)
  Receive Date: 20130513
  Receipt Date: 20130628
  Transmission Date: 20140414
  Serious: Yes (Other)
  Sender: FDA-Public Use
  Company Number: 7209616

PATIENT
  Age: 2 Year
  Sex: 0

DRUGS (1)
  1. EUTHYROX [Suspect]
     Indication: ACCIDENTAL EXPOSURE TO PRODUCT BY CHILD
     Dosage: (125 DF,ONCE)
     Route: 048
     Dates: start: 20130503, end: 20130503

REACTIONS (6)
  - Hyperthyroidism [None]
  - Accidental exposure to product by child [None]
  - Dysphonia [None]
  - Rash [None]
  - Tachycardia [None]
  - Crying [None]
